FAERS Safety Report 9751765 (Version 2)
Quarter: 2014Q1

REPORT INFORMATION
  Report Type: Spontaneous
  Country: US (occurrence: US)
  Receive Date: 20131213
  Receipt Date: 20140114
  Transmission Date: 20141002
  Serious: No
  Sender: FDA-Public Use
  Company Number: US-BIOGENIDEC-2013BI117324

PATIENT
  Age: 55 Year
  Sex: Female

DRUGS (1)
  1. TYSABRI [Suspect]
     Indication: MULTIPLE SCLEROSIS
     Route: 042
     Dates: start: 20100517

REACTIONS (15)
  - Memory impairment [Not Recovered/Not Resolved]
  - Erythema [Recovered/Resolved]
  - Cellulitis [Not Recovered/Not Resolved]
  - Arthropod bite [Recovered/Resolved]
  - Bite [Not Recovered/Not Resolved]
  - Haemorrhage [Recovered/Resolved]
  - Aphasia [Unknown]
  - Hemiparesis [Not Recovered/Not Resolved]
  - Hypoaesthesia [Not Recovered/Not Resolved]
  - Swelling [Recovered/Resolved]
  - Pain [Recovered/Resolved]
  - Feeling hot [Recovered/Resolved]
  - Coordination abnormal [Not Recovered/Not Resolved]
  - Staphylococcal infection [Recovered/Resolved]
  - Vomiting [Recovered/Resolved]
